FAERS Safety Report 11258753 (Version 1)
Quarter: 2015Q3

REPORT INFORMATION
  Report Type: Spontaneous
  Country: AU (occurrence: None)
  Receive Date: 20150708
  Receipt Date: 20150708
  Transmission Date: 20151125
  Serious: Yes (Hospitalization)
  Sender: FDA-Public Use
  Company Number: 2015HINLIT0547

PATIENT
  Age: 43 Year
  Sex: Female

DRUGS (2)
  1. PARACETAMOL/CODEINE (PARACETAMOL/CODEINE) [Suspect]
     Active Substance: ACETAMINOPHEN\CODEINE PHOSPHATE
     Indication: PRODUCT USED FOR UNKNOWN INDICATION
     Dosage: 10G/600 MG PARACETAMOL/CODEINE COMBINATION PRODUCT
  2. LEVITIRACETAM [Suspect]
     Active Substance: LEVETIRACETAM
     Indication: PRODUCT USED FOR UNKNOWN INDICATION

REACTIONS (3)
  - Intentional overdose [None]
  - Sinus bradycardia [None]
  - Hypotension [None]
